FAERS Safety Report 5042525-4 (Version None)
Quarter: 2006Q2

REPORT INFORMATION
  Report Type: 
  Country: None (occurrence: None)
  Receive Date: 20060627
  Receipt Date: 20060607
  Transmission Date: 20061013
  Serious: Yes (Hospitalization)
  Sender: FDA-Public Use
  Company Number: 2006001190

PATIENT
  Age: 57 Year
  Sex: Female

DRUGS (5)
  1. ERLOTINIB HCL (TABLET) [Suspect]
     Indication: NON-SMALL CELL LUNG CANCER
     Dosage: SEE IMAGE
     Route: 048
     Dates: start: 20060330, end: 20060510
  2. ERLOTINIB HCL (TABLET) [Suspect]
     Indication: NON-SMALL CELL LUNG CANCER
     Dosage: SEE IMAGE
     Route: 048
     Dates: start: 20060523
  3. SERTRALINE [Concomitant]
  4. QUETIAPINE FUMARATE [Concomitant]
  5. ALPRAZOLAM [Concomitant]

REACTIONS (2)
  - MYOCLONUS [None]
  - TREMOR [None]
